FAERS Safety Report 9470927 (Version 3)
Quarter: 2013Q4

REPORT INFORMATION
  Report Type: Spontaneous
  Country: US (occurrence: US)
  Receive Date: 20130822
  Receipt Date: 20131003
  Transmission Date: 20140711
  Serious: No
  Sender: FDA-Public Use
  Company Number: US-UCBSA-095415

PATIENT
  Age: 21 Year
  Sex: Male
  Weight: 72.72 kg

DRUGS (1)
  1. KEPPRA [Suspect]
     Indication: CONVULSION
     Dosage: SINCE 1 YEAR

REACTIONS (1)
  - Convulsion [Recovered/Resolved]
